FAERS Safety Report 7118557-9 (Version None)
Quarter: 2010Q4

REPORT INFORMATION
  Report Type: 
  Country: None (occurrence: None)
  Receive Date: 20101123
  Receipt Date: 20100601
  Transmission Date: 20110411
  Serious: Yes (Hospitalization)
  Sender: FDA-Public Use
  Company Number: US-SANOFI-AVENTIS-2010SA027076

PATIENT
  Sex: Female
  Weight: 56.81 kg

DRUGS (2)
  1. ZOLPIDEM [Suspect]
     Indication: INSOMNIA
     Dosage: ONE HALF OF A 5MG TABLET OR 5MG THREE TIMES A WEEK
     Route: 048
     Dates: start: 20080701, end: 20091101
  2. ZOLPIDEM [Suspect]
     Dosage: SIX NIGHTS PER WEEK
     Route: 048
     Dates: start: 20091101, end: 20100430

REACTIONS (8)
  - BLOOD PRESSURE FLUCTUATION [None]
  - DIARRHOEA [None]
  - HEADACHE [None]
  - HYPERACUSIS [None]
  - ORTHOSTATIC HYPOTENSION [None]
  - PARAESTHESIA [None]
  - TACHYCARDIA [None]
  - WRONG TECHNIQUE IN DRUG USAGE PROCESS [None]
